FAERS Safety Report 15752199 (Version 2)
Quarter: 2019Q1

REPORT INFORMATION
  Report Type: Report from Study
  Country: DK (occurrence: DK)
  Receive Date: 20181221
  Receipt Date: 20190110
  Transmission Date: 20190417
  Serious: Yes (Hospitalization)
  Sender: FDA-Public Use
  Company Number: PHHO2018DK013363

PATIENT
  Age: 57 Year
  Sex: Female
  Weight: 85 kg

DRUGS (7)
  1. PARACETAMOL [Concomitant]
     Active Substance: ACETAMINOPHEN
     Indication: PAIN
     Dosage: 1 G, QD
     Route: 065
     Dates: start: 20181117
  2. LEE011 [Suspect]
     Active Substance: RIBOCICLIB
     Indication: BREAST CANCER
     Dosage: 600 MG, UNK
     Route: 048
     Dates: start: 20160317
  3. UNIKALK FORTE [Concomitant]
     Indication: SUPPLEMENTATION THERAPY
     Dosage: 400 MG, QD
     Route: 065
     Dates: start: 20160317
  4. PARACETAMOL [Concomitant]
     Active Substance: ACETAMINOPHEN
     Dosage: 1 G, PRN
     Route: 065
     Dates: start: 20181205
  5. IBUPROFEN. [Concomitant]
     Active Substance: IBUPROFEN
     Indication: PAIN
     Dosage: 400 MG, TID PRN
     Route: 065
     Dates: start: 20181122
  6. DALTEPARIN [Concomitant]
     Active Substance: DALTEPARIN
     Indication: PROPHYLAXIS
     Dosage: 5000 IE, QD
     Route: 065
     Dates: start: 20181118
  7. COMPARATOR FULVESTRANT [Suspect]
     Active Substance: FULVESTRANT
     Indication: BREAST CANCER
     Dosage: 500 MG, UNK
     Route: 030
     Dates: start: 20160317

REACTIONS (2)
  - Infection [Recovered/Resolved]
  - Neutropenia [Recovered/Resolved]

NARRATIVE: CASE EVENT DATE: 20181202
